FAERS Safety Report 13428353 (Version 1)
Quarter: 2017Q2

REPORT INFORMATION
  Report Type: Report from Study
  Country: IT (occurrence: IT)
  Receive Date: 20170411
  Receipt Date: 20170411
  Transmission Date: 20170830
  Serious: Yes (Other)
  Sender: FDA-Public Use
  Company Number: IT-TEVA-752869ACC

PATIENT
  Age: 88 Year
  Sex: Male

DRUGS (11)
  1. TRITTICO - 75 MG COMPRESSE A RILASCIO PROLUNGATO [Suspect]
     Active Substance: TRAZODONE HYDROCHLORIDE
     Indication: SEDATIVE THERAPY
     Dosage: 75 MG DAILY
     Route: 048
     Dates: start: 20150101, end: 20160404
  2. DUROGESIC - 50 MICROGRAMMI/ORA CEROTTI TRANSDERMICI [Suspect]
     Active Substance: FENTANYL
     Indication: ANALGESIC THERAPY
     Dosage: 25 MG DAILY
     Route: 062
     Dates: start: 20150101, end: 20160404
  3. LEVOPRAID [Concomitant]
     Active Substance: SULPIRIDE
     Indication: PRODUCT USED FOR UNKNOWN INDICATION
  4. CARDIOASPIRIN - 100 MG COMPRESSE GASTRORESISTENTI [Concomitant]
     Active Substance: ASPIRIN
     Indication: PRODUCT USED FOR UNKNOWN INDICATION
  5. BISOPROLOL FUMARATE. [Concomitant]
     Active Substance: BISOPROLOL FUMARATE
     Indication: PRODUCT USED FOR UNKNOWN INDICATION
     Dosage: 1.25 MG
     Route: 048
  6. OLANZAPINE. [Suspect]
     Active Substance: OLANZAPINE
     Indication: SEDATIVE THERAPY
     Dosage: 5 MG DAILY
     Route: 048
     Dates: start: 20150101, end: 20160404
  7. LUVION - 50 MG COMPRESSE [Concomitant]
     Indication: PRODUCT USED FOR UNKNOWN INDICATION
  8. ALIFLUS - 25/50 MCG SOSPENSIONE PRESSURIZZATA PER INALAZIONE [Concomitant]
     Indication: PRODUCT USED FOR UNKNOWN INDICATION
  9. LASIX [Concomitant]
     Active Substance: FUROSEMIDE
     Indication: PRODUCT USED FOR UNKNOWN INDICATION
  10. PARACETAMOL [Concomitant]
     Active Substance: ACETAMINOPHEN
     Indication: PRODUCT USED FOR UNKNOWN INDICATION
  11. CLEXANE - 4000 U.I. AXA/0,4 ML SOLUZIONE INIETTABILE [Concomitant]
     Indication: PRODUCT USED FOR UNKNOWN INDICATION

REACTIONS (5)
  - Pallor [Unknown]
  - Sopor [Unknown]
  - Walking disability [Unknown]
  - Disorientation [Unknown]
  - Cognitive disorder [Unknown]

NARRATIVE: CASE EVENT DATE: 20160404
